FAERS Safety Report 17670907 (Version 1)
Quarter: 2020Q2

REPORT INFORMATION
  Report Type: Spontaneous
  Country: US (occurrence: US)
  Receive Date: 20200414
  Receipt Date: 20200414
  Transmission Date: 20200713
  Serious: Yes (Life-Threatening, Hospitalization)
  Sender: FDA-Public Use
  Company Number: None

PATIENT
  Age: 73 Year
  Sex: Male
  Weight: 195 kg

DRUGS (1)
  1. EMPAGLIFLOZIN (EMPAGLIFLOZIN 10MG TAB) [Suspect]
     Active Substance: EMPAGLIFLOZIN
     Indication: DIABETES MELLITUS
     Dosage: ?          OTHER FREQUENCY:AM;?
     Route: 048
     Dates: start: 20190425, end: 20190920

REACTIONS (7)
  - Diabetic ketoacidosis [None]
  - Confusional state [None]
  - Acute kidney injury [None]
  - Hyperglycaemia [None]
  - Urosepsis [None]
  - Urinary tract infection [None]
  - Liver function test decreased [None]

NARRATIVE: CASE EVENT DATE: 20190922
